FAERS Safety Report 18123049 (Version 5)
Quarter: 2022Q1

REPORT INFORMATION
  Report Type: Spontaneous
  Country: PL (occurrence: PL)
  Receive Date: 20200807
  Receipt Date: 20220303
  Transmission Date: 20220423
  Serious: Yes (Death, Life-Threatening, Hospitalization, Other)
  Sender: FDA-Public Use
  Company Number: None

PATIENT
  Age: 61 Year
  Sex: Female

DRUGS (12)
  1. MYCOPHENOLATE MOFETIL [Suspect]
     Active Substance: MYCOPHENOLATE MOFETIL
     Indication: Immunosuppressant drug therapy
     Route: 065
  2. BORTEZOMIB [Suspect]
     Active Substance: BORTEZOMIB
     Indication: Plasma cell myeloma
     Dosage: 10 CYCLES
     Route: 065
  3. GANCICLOVIR [Suspect]
     Active Substance: GANCICLOVIR
     Indication: Cytomegalovirus infection reactivation
     Route: 065
  4. TACROLIMUS [Suspect]
     Active Substance: TACROLIMUS
     Indication: Immunosuppressant drug therapy
     Dosage: UNK (PLUS 100 FOLLOWING ASCT)
     Route: 065
  5. THALIDOMIDE [Suspect]
     Active Substance: THALIDOMIDE
     Indication: Plasma cell myeloma
     Dosage: 10 CYCLES, ALSO RECEIVED 2 CYCLES
     Route: 065
  6. VALGANCICLOVIR HYDROCHLORIDE [Suspect]
     Active Substance: VALGANCICLOVIR HYDROCHLORIDE
     Indication: Cytomegalovirus infection reactivation
     Dosage: 900 MILLIGRAM. 0.5 DAY
     Route: 065
  7. METHYLPREDNISOLONE [Suspect]
     Active Substance: METHYLPREDNISOLONE
     Indication: Immunosuppressant drug therapy
     Dosage: UNK(PLUS 100 FOLLOWING ASCT)
     Route: 065
  8. MELPHALAN [Suspect]
     Active Substance: MELPHALAN
     Indication: Bone marrow conditioning regimen
     Dosage: 350 MILLIGRAM (TOTAL DOSE)
  9. CYCLOPHOSPHAMIDE [Suspect]
     Active Substance: CYCLOPHOSPHAMIDE
     Indication: Plasma cell myeloma
     Dosage: 2 CYCLES
     Route: 065
  10. DEXAMETHASONE [Suspect]
     Active Substance: DEXAMETHASONE
     Indication: Plasma cell myeloma
     Dosage: 10 CYCLES OF TREATMEN
     Route: 065
  11. TACROLIMUS [Suspect]
     Active Substance: TACROLIMUS
     Indication: Graft versus host disease
     Dosage: UNK (PLUS 100 FOLLOWING ASCT)
     Route: 065
  12. DEXAMETHASONE [Concomitant]
     Active Substance: DEXAMETHASONE
     Indication: Plasma cell myeloma
     Dosage: 2 CYCLES

REACTIONS (17)
  - Gastrointestinal disorder [Fatal]
  - Cytomegalovirus infection reactivation [Fatal]
  - Skin exfoliation [Fatal]
  - Dry skin [Fatal]
  - Diarrhoea [Fatal]
  - Pneumonia [Fatal]
  - Rash [Fatal]
  - Pancytopenia [Fatal]
  - Asthenia [Fatal]
  - Drug ineffective [Fatal]
  - General physical condition abnormal [Fatal]
  - Graft versus host disease [Fatal]
  - Appetite disorder [Fatal]
  - Weight decreased [Fatal]
  - Infection [Fatal]
  - Decreased appetite [Fatal]
  - Therapeutic product effect incomplete [Not Recovered/Not Resolved]
